FAERS Safety Report 9642421 (Version 1)
Quarter: 2013Q4

REPORT INFORMATION
  Report Type: Spontaneous
  Country: FR (occurrence: FR)
  Receive Date: 20131024
  Receipt Date: 20131024
  Transmission Date: 20140711
  Serious: Yes (Other)
  Sender: FDA-Public Use
  Company Number: FR-AMGEN-FRASP2013074725

PATIENT
  Age: 55 Year
  Sex: Female

DRUGS (1)
  1. ENBREL [Suspect]
     Indication: PRODUCT USED FOR UNKNOWN INDICATION
     Dosage: UNK
     Route: 065

REACTIONS (7)
  - Pharyngeal oedema [Unknown]
  - Local swelling [Unknown]
  - Choking sensation [Unknown]
  - Gait disturbance [Unknown]
  - Headache [Unknown]
  - Local swelling [Unknown]
  - Drug effect decreased [Unknown]
